FAERS Safety Report 8494349-3 (Version None)
Quarter: 2012Q2

REPORT INFORMATION
  Report Type: 
  Country: None (occurrence: None)
  Receive Date: 20120628
  Receipt Date: 20120619
  Transmission Date: 20120825
  Serious: Yes (Disabling)
  Sender: FDA-Public Use
  Company Number: 2012SP034551

PATIENT
  Age: 38 Year
  Sex: Female

DRUGS (2)
  1. CERAZETTE (DESOGESTREL /00754001/) (75 MCG) [Suspect]
     Indication: OVARIAN CYST
     Dosage: 1 DF;QD
     Dates: start: 20110901
  2. CERAZETTE (DESOGESTREL /00754001/) (75 MCG) [Suspect]
     Indication: DYSMENORRHOEA
     Dosage: 1 DF;QD
     Dates: start: 20110901

REACTIONS (9)
  - METRORRHAGIA [None]
  - IMPAIRED WORK ABILITY [None]
  - MENSTRUAL DISORDER [None]
  - DIARRHOEA [None]
  - ANXIETY [None]
  - ABDOMINAL PAIN [None]
  - NAUSEA [None]
  - VOMITING [None]
  - SYNCOPE [None]
